FAERS Safety Report 12552122 (Version 1)
Quarter: 2016Q3

REPORT INFORMATION
  Report Type: Spontaneous
  Country: US (occurrence: None)
  Receive Date: 20160712
  Receipt Date: 20160712
  Transmission Date: 20161109
  Serious: Yes (Other)
  Sender: FDA-Public Use
  Company Number: None

PATIENT
  Sex: Female

DRUGS (1)
  1. BUPROPRION [Suspect]
     Active Substance: BUPROPION
     Indication: DEPRESSION
     Route: 048
     Dates: start: 20140207, end: 20160606

REACTIONS (5)
  - Therapeutic response changed [None]
  - Urticaria [None]
  - Product substitution issue [None]
  - Vomiting [None]
  - Nausea [None]
